FAERS Safety Report 25587060 (Version 1)
Quarter: 2025Q3

REPORT INFORMATION
  Report Type: Spontaneous
  Country: US (occurrence: US)
  Receive Date: 20250721
  Receipt Date: 20250721
  Transmission Date: 20251021
  Serious: No
  Sender: Phathom Pharmaceuticals
  Company Number: US-PHATHOM PHARMACEUTICALS INC.-2025PHT00782

PATIENT
  Age: 63 Year
  Sex: Male

DRUGS (16)
  1. VOQUEZNA [Suspect]
     Active Substance: VONOPRAZAN FUMARATE
     Dosage: 20 MG, 1X/DAY
     Route: 048
     Dates: start: 20241217, end: 20250324
  2. MELATONIN [Concomitant]
     Active Substance: MELATONIN
  3. XHANCE [Concomitant]
     Active Substance: FLUTICASONE PROPIONATE
  4. SERTRALINE [Concomitant]
     Active Substance: SERTRALINE HYDROCHLORIDE
  5. METFORMIN [Concomitant]
     Active Substance: METFORMIN HYDROCHLORIDE
  6. GABAPENTIN [Concomitant]
     Active Substance: GABAPENTIN
  7. ATORVASTATIN [Concomitant]
     Active Substance: ATORVASTATIN
  8. AMLODIPINE [Concomitant]
     Active Substance: AMLODIPINE BESYLATE
  9. SYNTHROID [Concomitant]
     Active Substance: LEVOTHYROXINE SODIUM
  10. ELIQUIS [Concomitant]
     Active Substance: APIXABAN
  11. PROSCAR [Concomitant]
     Active Substance: FINASTERIDE
  12. SENOKOT [Concomitant]
     Active Substance: SENNOSIDES
  13. FLONASE [Concomitant]
     Active Substance: FLUTICASONE PROPIONATE
  14. SYMBICORT [Concomitant]
     Active Substance: BUDESONIDE\FORMOTEROL FUMARATE DIHYDRATE
  15. CIALIS [Concomitant]
     Active Substance: TADALAFIL
  16. LASIX [Concomitant]
     Active Substance: FUROSEMIDE

REACTIONS (5)
  - Blood cholesterol increased [Unknown]
  - Muscle spasms [Unknown]
  - Gastrooesophageal reflux disease [Unknown]
  - Syncope [Unknown]
  - Blood pressure increased [Unknown]

NARRATIVE: CASE EVENT DATE: 20250321
